FAERS Safety Report 10290742 (Version 1)
Quarter: 2014Q3

REPORT INFORMATION
  Report Type: Spontaneous
  Country: GB (occurrence: None)
  Receive Date: 20140708
  Receipt Date: 20140708
  Transmission Date: 20150326
  Serious: Yes (Hospitalization, Disabling, Other)
  Sender: FDA-Public Use
  Company Number: AUR-APL-2014-06991

PATIENT
  Age: 80 Year
  Sex: Female
  Weight: 61.7 kg

DRUGS (4)
  1. FELODIPINE (FELODIPINE) [Concomitant]
  2. LIPITOR [Suspect]
     Active Substance: ATORVASTATIN CALCIUM
     Indication: CEREBROVASCULAR ACCIDENT PROPHYLAXIS
     Route: 048
  3. SIMVASTATIN (SIMVASTATIN) UNKNOWN, UNKNOWN [Suspect]
     Active Substance: SIMVASTATIN
     Indication: CEREBROVASCULAR ACCIDENT PROPHYLAXIS
     Route: 048
  4. ASPIRIN (ACEYLSALIC ACID) [Concomitant]

REACTIONS (8)
  - Paralysis [None]
  - Paraesthesia [None]
  - Nausea [None]
  - Feeling abnormal [None]
  - Dysphagia [None]
  - Gait disturbance [None]
  - Headache [None]
  - Speech disorder [None]

NARRATIVE: CASE EVENT DATE: 2007
